FAERS Safety Report 14358636 (Version 2)
Quarter: 2019Q1

REPORT INFORMATION
  Report Type: Spontaneous
  Country: US (occurrence: US)
  Receive Date: 20180105
  Receipt Date: 20190115
  Transmission Date: 20190417
  Serious: No
  Sender: FDA-Public Use
  Company Number: US-SA-2017SA239710

PATIENT
  Age: 45 Year
  Sex: Female
  Weight: 145 kg

DRUGS (6)
  1. METHYLPHENIDATE. [Concomitant]
     Active Substance: METHYLPHENIDATE
  2. HYDROXYZINE [Concomitant]
     Active Substance: HYDROXYZINE HYDROCHLORIDE
  3. DUPIXENT [Suspect]
     Active Substance: DUPILUMAB
     Indication: DERMATITIS ATOPIC
     Dosage: 600 MG,1X
     Route: 058
     Dates: start: 20171113, end: 20171113
  4. ELIDEL [Concomitant]
     Active Substance: PIMECROLIMUS
  5. NITROFURANTOIN. [Concomitant]
     Active Substance: NITROFURANTOIN
  6. TRAZODONE [Concomitant]
     Active Substance: TRAZODONE HYDROCHLORIDE

REACTIONS (6)
  - Feeling hot [Unknown]
  - Pruritus [Unknown]
  - Erythema [Unknown]
  - Inflammation [Unknown]
  - Condition aggravated [Unknown]
  - Injection site pain [Unknown]

NARRATIVE: CASE EVENT DATE: 20171114
